FAERS Safety Report 15104287 (Version 1)
Quarter: 2018Q3

REPORT INFORMATION
  Report Type: Spontaneous
  Country: US (occurrence: US)
  Receive Date: 20180703
  Receipt Date: 20180703
  Transmission Date: 20181010
  Serious: Yes (Life-Threatening, Hospitalization)
  Sender: FDA-Public Use
  Company Number: US-ACTELION-A-US2018-174571

PATIENT
  Age: 22 Year
  Sex: Female

DRUGS (5)
  1. TRACLEER [Suspect]
     Active Substance: BOSENTAN
     Indication: PULMONARY HYPERTENSION
     Dosage: 125 MG, BID
     Route: 048
  2. TYVASO [Concomitant]
     Active Substance: TREPROSTINIL
     Dosage: 9 PUFF, Q4HRS
     Route: 045
  3. FUROSEMIDE. [Concomitant]
     Active Substance: FUROSEMIDE
     Dosage: 20 MG, QD
     Route: 048
  4. SILDENAFIL. [Concomitant]
     Active Substance: SILDENAFIL
     Dosage: 20 MG, TID
     Route: 048
  5. ASPIRIN. [Concomitant]
     Active Substance: ASPIRIN
     Dosage: UNK, QOD
     Route: 048

REACTIONS (24)
  - Blood lactic acid increased [Unknown]
  - Ventricular arrhythmia [Not Recovered/Not Resolved]
  - Atrial fibrillation [Unknown]
  - Oxygen saturation decreased [Unknown]
  - Sinus rhythm [Unknown]
  - Right ventricular dysfunction [Unknown]
  - Condition aggravated [Unknown]
  - Atrial flutter [Not Recovered/Not Resolved]
  - Cardiac output decreased [Not Recovered/Not Resolved]
  - Cardiac arrest [Unknown]
  - Ventricular tachycardia [Unknown]
  - Tunnel vision [Unknown]
  - Dizziness [Unknown]
  - Fall [Unknown]
  - Ventricular extrasystoles [Not Recovered/Not Resolved]
  - Nodal rhythm [Unknown]
  - Heart rate increased [Unknown]
  - Pyrexia [Unknown]
  - Head injury [Unknown]
  - Metabolic acidosis [Unknown]
  - Syncope [Unknown]
  - Hypotension [Unknown]
  - Sinus bradycardia [Not Recovered/Not Resolved]
  - Tricuspid valve incompetence [Unknown]

NARRATIVE: CASE EVENT DATE: 20180518
